FAERS Safety Report 6900051-9 (Version None)
Quarter: 2010Q3

REPORT INFORMATION
  Report Type: 
  Country: None (occurrence: None)
  Receive Date: 20100803
  Receipt Date: 20100722
  Transmission Date: 20110219
  Serious: Yes (Hospitalization)
  Sender: FDA-Public Use
  Company Number: US-JNJFOC-20100707582

PATIENT
  Age: 64 Year
  Sex: Female

DRUGS (10)
  1. SIMPONI [Suspect]
     Indication: RHEUMATOID ARTHRITIS
     Route: 058
  2. AMBIEN [Concomitant]
     Route: 048
  3. TRIAMTERENE [Concomitant]
     Route: 048
  4. HYDROCHLOROTHIAZIDE [Concomitant]
     Route: 048
  5. AMIODARONE HCL [Concomitant]
     Route: 048
  6. TRAMADOL HYDROCHLORIDE [Concomitant]
     Route: 048
  7. PRILOSEC [Concomitant]
     Route: 048
  8. CELEXA [Concomitant]
     Route: 048
  9. SYNTHROID [Concomitant]
     Route: 048
  10. ESTRADIOL [Concomitant]
     Route: 048

REACTIONS (5)
  - DIARRHOEA [None]
  - HERPES ZOSTER [None]
  - NAUSEA [None]
  - URINARY TRACT INFECTION [None]
  - VOMITING [None]
